FAERS Safety Report 24238637 (Version 1)
Quarter: 2024Q3

REPORT INFORMATION
  Report Type: Report from Study
  Country: US (occurrence: None)
  Receive Date: 20240822
  Receipt Date: 20240822
  Transmission Date: 20241017
  Serious: Yes (Hospitalization)
  Sender: ASTRAZENECA
  Company Number: 2023A085629

PATIENT
  Age: 76 Year
  Sex: Female

DRUGS (1)
  1. TAGRISSO [Suspect]
     Active Substance: OSIMERTINIB
     Route: 048
     Dates: start: 20210628

REACTIONS (5)
  - Pleural effusion [Unknown]
  - Arthralgia [Unknown]
  - Muscle spasms [Unknown]
  - Memory impairment [Unknown]
  - Taste disorder [Unknown]

NARRATIVE: CASE EVENT DATE: 20230101
